FAERS Safety Report 20701369 (Version 3)
Quarter: 2024Q3

REPORT INFORMATION
  Report Type: Spontaneous
  Country: CA (occurrence: CA)
  Receive Date: 20220412
  Receipt Date: 20240909
  Transmission Date: 20241016
  Serious: Yes (Hospitalization)
  Sender: ROCHE
  Company Number: CA-ROCHE-3069817

PATIENT
  Sex: Female

DRUGS (10)
  1. RITUXIMAB [Suspect]
     Active Substance: RITUXIMAB
     Indication: Systemic lupus erythematosus
     Route: 041
  2. BENADRYL [Concomitant]
     Active Substance: DIPHENHYDRAMINE HYDROCHLORIDE
     Route: 048
  3. BENLYSTA [Concomitant]
     Active Substance: BELIMUMAB
     Route: 058
  4. CLONIDINE [Concomitant]
     Active Substance: CLONIDINE
  5. FENTANYL [Concomitant]
     Active Substance: FENTANYL\FENTANYL CITRATE
  6. HYDROXYZINE [Concomitant]
     Active Substance: HYDROXYZINE HYDROCHLORIDE
  7. NABILONE [Concomitant]
     Active Substance: NABILONE
  8. PRUCALOPRIDE SUCCINATE [Concomitant]
     Active Substance: PRUCALOPRIDE SUCCINATE
  9. TRAMADOL [Concomitant]
     Active Substance: TRAMADOL\TRAMADOL HYDROCHLORIDE
  10. TYLENOL [Concomitant]
     Active Substance: ACETAMINOPHEN
     Route: 048

REACTIONS (15)
  - Abdominal pain upper [Not Recovered/Not Resolved]
  - Off label use [Unknown]
  - Sepsis [Not Recovered/Not Resolved]
  - Tooth disorder [Not Recovered/Not Resolved]
  - Tooth infection [Not Recovered/Not Resolved]
  - Urinary tract infection [Not Recovered/Not Resolved]
  - Vascular device infection [Not Recovered/Not Resolved]
  - Chest pain [Not Recovered/Not Resolved]
  - Haematological infection [Not Recovered/Not Resolved]
  - Hypotension [Not Recovered/Not Resolved]
  - Nephrolithiasis [Not Recovered/Not Resolved]
  - Stoma site pain [Not Recovered/Not Resolved]
  - Volvulus [Not Recovered/Not Resolved]
  - Kidney infection [Not Recovered/Not Resolved]
  - Dehydration [Not Recovered/Not Resolved]
